FAERS Safety Report 20372614 (Version 1)
Quarter: 2022Q1

REPORT INFORMATION
  Report Type: Spontaneous
  Country: ES (occurrence: ES)
  Receive Date: 20220125
  Receipt Date: 20220125
  Transmission Date: 20220424
  Serious: Yes (Death, Hospitalization, Other)
  Sender: FDA-Public Use
  Company Number: None

PATIENT

DRUGS (12)
  1. IMATINIB [Interacting]
     Active Substance: IMATINIB
     Indication: Chronic myeloid leukaemia
     Dosage: 300 MILLIGRAM, QD
     Route: 048
  2. IMATINIB [Interacting]
     Active Substance: IMATINIB
     Indication: Lung adenocarcinoma stage IV
     Dosage: 400 MILLIGRAM, QD
     Route: 048
  3. IMATINIB [Interacting]
     Active Substance: IMATINIB
     Dosage: 400 MILLIGRAM, QD
     Route: 048
     Dates: start: 20170413, end: 20170510
  4. IMATINIB [Interacting]
     Active Substance: IMATINIB
     Dosage: 600 MILLIGRAM, QD
     Route: 048
     Dates: start: 20170413, end: 20170510
  5. IMATINIB [Interacting]
     Active Substance: IMATINIB
     Dosage: 600 MILLIGRAM, QD
     Route: 065
     Dates: start: 20170413, end: 20170510
  6. ERLOTINIB [Suspect]
     Active Substance: ERLOTINIB
     Indication: Chronic myeloid leukaemia
     Dosage: 100 MILLIGRAM
     Route: 065
  7. GEFITINIB [Interacting]
     Active Substance: GEFITINIB
     Indication: Chronic myeloid leukaemia
     Dosage: 250 MILLIGRAM, QD
     Route: 065
  8. GEFITINIB [Interacting]
     Active Substance: GEFITINIB
     Indication: Lung adenocarcinoma stage IV
     Dosage: UNK
     Route: 048
     Dates: start: 201610, end: 20170608
  9. INSULIN GLARGINE [Concomitant]
     Active Substance: INSULIN GLARGINE
     Indication: Product used for unknown indication
     Dosage: 28 INTERNATIONAL UNIT, QD
     Route: 065
  10. REPAGLINIDE [Concomitant]
     Active Substance: REPAGLINIDE
     Indication: Product used for unknown indication
     Dosage: 1 DOSAGE FORM, EVERY 8 HOURS
     Route: 065
  11. BISOPROLOL [Concomitant]
     Active Substance: BISOPROLOL
     Indication: Product used for unknown indication
     Dosage: 2.5 MILLIGRAM, QD
     Route: 065
  12. BEMIPARIN [Concomitant]
     Active Substance: BEMIPARIN
     Indication: Product used for unknown indication
     Dosage: 5000 INTERNATIONAL UNIT, QD
     Route: 065

REACTIONS (8)
  - Pancreatitis acute [Fatal]
  - Neoplasm progression [Fatal]
  - Malignant neoplasm progression [Unknown]
  - Drug interaction [Recovering/Resolving]
  - Pancreatitis [Recovered/Resolved]
  - Gastrointestinal toxicity [Unknown]
  - Product use in unapproved indication [Unknown]
  - Asthenia [Unknown]

NARRATIVE: CASE EVENT DATE: 20170608
